FAERS Safety Report 7128375-3 (Version None)
Quarter: 2010Q4

REPORT INFORMATION
  Report Type: 
  Country: None (occurrence: None)
  Receive Date: 20101130
  Receipt Date: 20101118
  Transmission Date: 20110411
  Serious: Yes (Other)
  Sender: FDA-Public Use
  Company Number: JP-SANOFI-AVENTIS-2010SA071484

PATIENT
  Age: 48 Year

DRUGS (5)
  1. MYSLEE [Suspect]
     Route: 048
  2. DOGMATYL [Suspect]
     Route: 048
  3. ALCOHOL [Suspect]
     Indication: ALCOHOL USE
     Route: 048
  4. PAXIL [Concomitant]
     Route: 048
  5. DEPAS [Concomitant]
     Route: 048

REACTIONS (3)
  - OFF LABEL USE [None]
  - OVERDOSE [None]
  - ROAD TRAFFIC ACCIDENT [None]
